FAERS Safety Report 18378222 (Version 1)
Quarter: 2020Q4

REPORT INFORMATION
  Report Type: Spontaneous
  Country: TW (occurrence: TW)
  Receive Date: 20201013
  Receipt Date: 20201013
  Transmission Date: 20210114
  Serious: Yes (Other)
  Sender: FDA-Public Use
  Company Number: TW-PFIZER INC-2020389213

PATIENT
  Age: 16 Year
  Sex: Male

DRUGS (3)
  1. METHOTREXATE. [Suspect]
     Active Substance: METHOTREXATE
     Indication: OSTEOSARCOMA
     Dosage: UNK, HD-MTX (8 GM/M2 BY 6 H INTRAVENOUS INFUSION)
     Route: 042
  2. LEUCOVORIN CALCIUM. [Concomitant]
     Active Substance: LEUCOVORIN CALCIUM
     Indication: OSTEOSARCOMA
     Dosage: 15 MG, (15 MG INTRAVENOUSLY EVERY 3 H FOR EIGHT DOSES, WEEKLY)
     Route: 042
  3. LEUCOVORIN CALCIUM. [Concomitant]
     Active Substance: LEUCOVORIN CALCIUM
     Indication: PROPHYLAXIS
     Dosage: 15 MG, (EVERY 6 H FOR ANOTHER EIGHT DOSES) WEEKLY)
     Route: 042

REACTIONS (4)
  - Hemiparesis [Recovered/Resolved]
  - Dysarthria [Recovered/Resolved]
  - Altered state of consciousness [Recovered/Resolved]
  - Neurotoxicity [Recovered/Resolved]
